FAERS Safety Report 5237805-3 (Version None)
Quarter: 2007Q1

REPORT INFORMATION
  Report Type: 
  Country: None (occurrence: None)
  Receive Date: 20070214
  Receipt Date: 20070207
  Transmission Date: 20070707
  Serious: Yes (Other)
  Sender: FDA-Public Use
  Company Number: 2006UW15884

PATIENT
  Age: 76 Year
  Sex: Male

DRUGS (4)
  1. CASODEX [Suspect]
     Route: 048
     Dates: start: 20060501
  2. FOSAMAX [Concomitant]
  3. COSOPT [Concomitant]
     Indication: GLAUCOMA
     Dates: end: 20060801
  4. XALATAN [Concomitant]
     Indication: GLAUCOMA

REACTIONS (9)
  - BLOOD CREATININE DECREASED [None]
  - FATIGUE [None]
  - FEELING ABNORMAL [None]
  - INTESTINAL OBSTRUCTION [None]
  - LETHARGY [None]
  - PARAESTHESIA [None]
  - PERIPHERAL COLDNESS [None]
  - SENSATION OF PRESSURE [None]
  - URINARY TRACT DISORDER [None]
